FAERS Safety Report 13754381 (Version 1)
Quarter: 2017Q3

REPORT INFORMATION
  Report Type: Spontaneous
  Country: DE (occurrence: DE)
  Receive Date: 20170714
  Receipt Date: 20170714
  Transmission Date: 20171127
  Serious: Yes (Other)
  Sender: FDA-Public Use
  Company Number: DE-PFIZER INC-2017299755

PATIENT
  Age: 77 Year
  Sex: Female
  Weight: 59 kg

DRUGS (14)
  1. FEM 7 CONTI [Concomitant]
     Active Substance: ESTRADIOL\LEVONORGESTREL
     Indication: MENTAL DISORDER
  2. TREVILOR RETARD [Suspect]
     Active Substance: VENLAFAXINE HYDROCHLORIDE
     Dosage: 75 MG, DAILY
     Dates: start: 201501, end: 201601
  3. LEFAX [Concomitant]
     Active Substance: DIMETHICONE
     Indication: ABDOMINAL DISTENSION
     Dosage: AS NEEDED
  4. CURCUMIN LOGES [Concomitant]
     Indication: SINUSITIS
     Dosage: 1 DF, 2X/DAY
     Dates: start: 20161201
  5. PANKREATICUM HEV B VERDAU [Concomitant]
     Indication: GASTROINTESTINAL DISORDER
     Dosage: AS NEEDED
  6. FEM 7 CONTI [Concomitant]
     Active Substance: ESTRADIOL\LEVONORGESTREL
     Indication: SLEEP DISORDER
     Dosage: UNK
     Route: 062
     Dates: start: 2013, end: 201705
  7. HYLAK PLUS ACIDOPHILUS [Concomitant]
     Indication: GASTROINTESTINAL DISORDER
     Dosage: AS NEEDED
  8. CURCUMIN LOGES [Concomitant]
     Indication: PROPHYLAXIS
  9. MOMETASON CIPLA [Concomitant]
     Dosage: UNK
     Route: 045
     Dates: start: 20161024
  10. VALSARTAN ACTAVIS COMP 80/12,5 [Concomitant]
     Indication: HYPERTENSION
     Dosage: 1 DF, ALTERNATE DAY
     Route: 048
     Dates: start: 2015
  11. TREVILOR RETARD [Suspect]
     Active Substance: VENLAFAXINE HYDROCHLORIDE
     Dosage: 75 MG, DAILY
     Dates: start: 201601
  12. L-THYROX HEXAL [Concomitant]
     Active Substance: LEVOTHYROXINE SODIUM
     Indication: HYPOTHYROIDISM
     Dosage: 1 DF, DAILY
     Route: 048
     Dates: start: 20161219
  13. TREVILOR RETARD [Suspect]
     Active Substance: VENLAFAXINE HYDROCHLORIDE
     Indication: DEPRESSION
     Dosage: 75 MG, DAILY
     Dates: start: 2005
  14. ASPIRIN PLUS C [Concomitant]
     Active Substance: ASCORBIC ACID\ASPIRIN
     Indication: HEADACHE
     Dosage: 1 DF, AS NEEDED

REACTIONS (6)
  - Sinusitis [Not Recovered/Not Resolved]
  - Cystitis [Not Recovered/Not Resolved]
  - Bronchitis [Not Recovered/Not Resolved]
  - Pneumonia [Not Recovered/Not Resolved]
  - Otitis media [Not Recovered/Not Resolved]
  - Gastrointestinal inflammation [Not Recovered/Not Resolved]

NARRATIVE: CASE EVENT DATE: 201110
